FAERS Safety Report 8171061-1 (Version None)
Quarter: 2012Q1

REPORT INFORMATION
  Report Type: 
  Country: None (occurrence: None)
  Receive Date: 20120228
  Receipt Date: 20120217
  Transmission Date: 20120608
  Serious: Yes (Hospitalization, Other)
  Sender: FDA-Public Use
  Company Number: PHHY2011DK42532

PATIENT
  Age: 64 Year
  Sex: Female

DRUGS (1)
  1. DICLOFENAC SODIUM [Suspect]
     Indication: OSTEOARTHRITIS
     Dosage: 50 MG, TID
     Route: 048

REACTIONS (11)
  - FIBROSIS [None]
  - DIARRHOEA [None]
  - GASTRIC ULCER [None]
  - ABDOMINAL PAIN [None]
  - COLONIC STENOSIS [None]
  - GASTROINTESTINAL DISORDER [None]
  - WEIGHT DECREASED [None]
  - HYPOCHROMIC ANAEMIA [None]
  - GASTRITIS [None]
  - INFLAMMATION [None]
  - LYMPHADENOPATHY [None]
